FAERS Safety Report 6141914-4 (Version None)
Quarter: 2009Q1

REPORT INFORMATION
  Report Type: 
  Country: None (occurrence: None)
  Receive Date: 20090331
  Receipt Date: 20090331
  Transmission Date: 20090719
  Serious: Yes (Hospitalization)
  Sender: FDA-Public Use
  Company Number: None

PATIENT
  Age: 68 Year
  Sex: Female
  Weight: 68.0396 kg

DRUGS (1)
  1. ACTONEL [Suspect]
     Indication: OSTEOPOROSIS
     Dosage: 150 MG ONE A MONTH PO
     Route: 048
     Dates: start: 20081103, end: 20090203

REACTIONS (11)
  - ASTHENIA [None]
  - BACK PAIN [None]
  - BONE PAIN [None]
  - FOOD POISONING [None]
  - HEADACHE [None]
  - HYPERHIDROSIS [None]
  - HYPERTENSION [None]
  - INFLUENZA LIKE ILLNESS [None]
  - MYALGIA [None]
  - OESOPHAGEAL SPASM [None]
  - OESOPHAGITIS [None]
